FAERS Safety Report 6572713-7 (Version None)
Quarter: 2010Q1

REPORT INFORMATION
  Report Type: 
  Country: None (occurrence: None)
  Receive Date: 20100205
  Receipt Date: 20100126
  Transmission Date: 20100710
  Serious: Yes (Life-Threatening)
  Sender: FDA-Public Use
  Company Number: GB-PFIZER INC-2010010097

PATIENT
  Age: 54 Year
  Sex: Male
  Weight: 88 kg

DRUGS (7)
  1. METHYLPREDNISOLONE ACETATE [Suspect]
     Indication: CHRONIC LYMPHOCYTIC LEUKAEMIA
     Dosage: 2 G, EVERY 4 WEEKS
     Route: 042
     Dates: start: 20081013, end: 20081130
  2. ALEMTUZUMAB [Suspect]
     Indication: CHRONIC LYMPHOCYTIC LEUKAEMIA
     Dosage: 30 MG, 3 TIMES A WEEK
     Route: 058
     Dates: start: 20081013, end: 20081130
  3. AMLODIPINE [Concomitant]
  4. CODEINE PHOSPHATE [Concomitant]
  5. CO-DYDRAMOL [Concomitant]
  6. FLUOXETINE [Concomitant]
  7. NAPROXEN [Concomitant]

REACTIONS (1)
  - HEPATITIS B [None]
